FAERS Safety Report 9706026 (Version 2)
Quarter: 2013Q4

REPORT INFORMATION
  Report Type: Spontaneous
  Country: US (occurrence: US)
  Receive Date: 20131122
  Receipt Date: 20131227
  Transmission Date: 20140711
  Serious: No
  Sender: FDA-Public Use
  Company Number: US-GILEAD-2013-0088365

PATIENT
  Age: 45 Year
  Sex: Female

DRUGS (7)
  1. LETAIRIS [Suspect]
     Indication: PULMONARY HYPERTENSION
     Dosage: 5 MG, QD
     Route: 048
     Dates: start: 20131024, end: 20131111
  2. LETAIRIS [Suspect]
     Indication: SCLERODERMA
  3. ADVAIR [Concomitant]
  4. PROAIR                             /00139502/ [Concomitant]
  5. ADCIRCA [Concomitant]
  6. NORVASC [Concomitant]
  7. PRILOSEC                           /00661201/ [Concomitant]

REACTIONS (2)
  - Oedema peripheral [Not Recovered/Not Resolved]
  - Dyspnoea [Recovered/Resolved]
